FAERS Safety Report 6854913-1 (Version None)
Quarter: 2010Q3

REPORT INFORMATION
  Report Type: 
  Country: None (occurrence: None)
  Receive Date: 20100717
  Receipt Date: 20080228
  Transmission Date: 20110219
  Serious: Yes (Other)
  Sender: FDA-Public Use
  Company Number: US-PFIZER INC-2008003661

PATIENT
  Sex: Male

DRUGS (1)
  1. CHANTIX [Suspect]

REACTIONS (7)
  - ABDOMINAL DISTENSION [None]
  - FATIGUE [None]
  - FLATULENCE [None]
  - GINGIVAL BLEEDING [None]
  - MEMORY IMPAIRMENT [None]
  - NAUSEA [None]
  - SOMNOLENCE [None]
